FAERS Safety Report 16422623 (Version 1)
Quarter: 2019Q2

REPORT INFORMATION
  Report Type: Report from Study
  Country: US (occurrence: US)
  Receive Date: 20190612
  Receipt Date: 20190612
  Transmission Date: 20190711
  Serious: Yes (Other)
  Sender: FDA-Public Use
  Company Number: US-BAUSCH-BL-2019-015252

PATIENT
  Age: 51 Year
  Sex: Female
  Weight: 79.45 kg

DRUGS (1)
  1. SYPRINE [Suspect]
     Active Substance: TRIENTINE HYDROCHLORIDE
     Indication: HEPATO-LENTICULAR DEGENERATION
     Route: 048
     Dates: start: 2012, end: 201812

REACTIONS (4)
  - Back pain [Not Recovered/Not Resolved]
  - Insurance issue [Unknown]
  - Expired product administered [Unknown]
  - Hepatitis [Unknown]

NARRATIVE: CASE EVENT DATE: 201812
